FAERS Safety Report 9461204 (Version 1)
Quarter: 2013Q3

REPORT INFORMATION
  Report Type: Spontaneous
  Country: US (occurrence: None)
  Receive Date: 20130814
  Receipt Date: 20130814
  Transmission Date: 20140515
  Serious: No
  Sender: FDA-Public Use
  Company Number: None

PATIENT
  Age: 31 Year
  Sex: Female
  Weight: 58.97 kg

DRUGS (4)
  1. MIRENA IUD [Suspect]
     Indication: CONTRACEPTION
     Dosage: 1 DEVICE  ONCE  INTRAUTERINE
     Route: 015
     Dates: start: 20130418, end: 20130523
  2. PRENATAL VITAMIN [Concomitant]
  3. LECITHIN [Concomitant]
  4. FISH OIL [Concomitant]

REACTIONS (1)
  - Suppressed lactation [None]
